FAERS Safety Report 10353992 (Version 1)
Quarter: 2014Q3

REPORT INFORMATION
  Report Type: Spontaneous
  Country: AU (occurrence: AU)
  Receive Date: 20140731
  Receipt Date: 20140731
  Transmission Date: 20150326
  Serious: Yes (Other)
  Sender: FDA-Public Use
  Company Number: AU-ASTRAZENECA-2014SE54120

PATIENT
  Age: 24495 Day
  Sex: Female

DRUGS (5)
  1. PERINDOPRIL [Concomitant]
     Active Substance: PERINDOPRIL
     Dates: start: 20140513
  2. MAGMIN [Concomitant]
     Active Substance: MAGNESIUM ASPARTATE
     Dates: start: 20130712
  3. MINAX [Concomitant]
     Active Substance: METAMIZOLE
     Dates: start: 20130403
  4. CRESTOR [Suspect]
     Active Substance: ROSUVASTATIN CALCIUM
     Route: 048
     Dates: start: 20140610, end: 20140617
  5. EZETROL [Suspect]
     Active Substance: EZETIMIBE
     Route: 065
     Dates: start: 20140618, end: 20140702

REACTIONS (10)
  - Tremor [Recovered/Resolved]
  - Gait disturbance [Recovered/Resolved]
  - Pain [Recovered/Resolved]
  - Pain in extremity [Recovered/Resolved]
  - Arthralgia [Recovered/Resolved]
  - Musculoskeletal pain [Recovered/Resolved]
  - Pain in extremity [Recovered/Resolved]
  - Dyspnoea [Recovered/Resolved]
  - Asthenia [Recovered/Resolved]
  - Headache [Recovered/Resolved]

NARRATIVE: CASE EVENT DATE: 20140703
